FAERS Safety Report 13419798 (Version 2)
Quarter: 2017Q3

REPORT INFORMATION
  Report Type: Spontaneous
  Country: US (occurrence: US)
  Receive Date: 20170407
  Receipt Date: 20170707
  Transmission Date: 20171127
  Serious: Yes (Other)
  Sender: FDA-Public Use
  Company Number: US-PFIZER INC-2017151302

PATIENT
  Age: 79 Year
  Sex: Female
  Weight: 64 kg

DRUGS (5)
  1. CELECOXIB. [Suspect]
     Active Substance: CELECOXIB
     Indication: MUSCULOSKELETAL STIFFNESS
     Dosage: UNK
     Dates: start: 2004
  2. TRAMADOL. [Concomitant]
     Active Substance: TRAMADOL
     Indication: PAIN
     Dosage: 50 MG, AS NEEDED (PRN)
     Dates: start: 2016
  3. CELECOXIB. [Suspect]
     Active Substance: CELECOXIB
     Indication: BACK PAIN
     Dosage: 200 MG, EVERY 3 DAYS
     Dates: start: 2016, end: 20170312
  4. TRAMADOL. [Concomitant]
     Active Substance: TRAMADOL
     Indication: MUSCLE SPASMS
  5. SYNTHROID [Concomitant]
     Active Substance: LEVOTHYROXINE SODIUM
     Indication: HYPOTHYROIDISM
     Dosage: 50 UG, 1X/DAY, IN THE MORNING
     Dates: start: 1985

REACTIONS (4)
  - Intentional product misuse [Unknown]
  - Age-related macular degeneration [Unknown]
  - Drug ineffective [Unknown]
  - Intervertebral disc protrusion [Unknown]

NARRATIVE: CASE EVENT DATE: 2016
